FAERS Safety Report 6897818-2 (Version None)
Quarter: 2010Q3

REPORT INFORMATION
  Report Type: 
  Country: None (occurrence: None)
  Receive Date: 20100802
  Receipt Date: 20070720
  Transmission Date: 20110219
  Serious: No
  Sender: FDA-Public Use
  Company Number: US-PFIZER INC-2007061023

PATIENT
  Sex: Female

DRUGS (3)
  1. LYRICA [Suspect]
     Indication: NERVE INJURY
     Route: 048
     Dates: start: 20070613
  2. DUONEB [Concomitant]
     Indication: ASTHMA
  3. DUONEB [Concomitant]
     Indication: EMPHYSEMA

REACTIONS (2)
  - MEMORY IMPAIRMENT [None]
  - SOMNOLENCE [None]
